FAERS Safety Report 21169662 (Version 2)
Quarter: 2022Q3

REPORT INFORMATION
  Report Type: Report from Study
  Country: CA (occurrence: CA)
  Receive Date: 20220804
  Receipt Date: 20220817
  Transmission Date: 20221027
  Serious: Yes (Other)
  Sender: FDA-Public Use
  Company Number: CA-JNJFOC-20210447668

PATIENT
  Age: 30 Year
  Sex: Female
  Weight: 77 kg

DRUGS (2)
  1. REMICADE [Suspect]
     Active Substance: INFLIXIMAB
     Indication: Crohn^s disease
     Dosage: ON 13-JUN-2022, THE PATIENT RECEIVED 160TH INFLIXIMAB, RECOMBINANT INFUSION AND PARTIAL HARVEY-BRADS
     Route: 042
     Dates: start: 20080102
  2. REMICADE [Suspect]
     Active Substance: INFLIXIMAB
     Dosage: EXPIRY DATE: 31-DEC-2024
     Route: 042

REACTIONS (15)
  - Infusion related reaction [Recovered/Resolved]
  - Nephrolithiasis [Not Recovered/Not Resolved]
  - Abdominal pain [Recovered/Resolved]
  - Haematochezia [Not Recovered/Not Resolved]
  - Urinary tract infection [Unknown]
  - Herpes zoster [Recovered/Resolved]
  - General physical health deterioration [Unknown]
  - Device issue [Not Recovered/Not Resolved]
  - Abdominal distension [Unknown]
  - Asthma [Recovered/Resolved]
  - Drug ineffective [Unknown]
  - Diarrhoea [Not Recovered/Not Resolved]
  - Nausea [Unknown]
  - Frequent bowel movements [Unknown]
  - Off label use [Unknown]

NARRATIVE: CASE EVENT DATE: 20080102
